FAERS Safety Report 8507196-0 (Version None)
Quarter: 2012Q3

REPORT INFORMATION
  Report Type: 
  Country: None (occurrence: None)
  Receive Date: 20120712
  Receipt Date: 20120627
  Transmission Date: 20120928
  Serious: Yes (Other)
  Sender: FDA-Public Use
  Company Number: FR-FRI-1000036858

PATIENT
  Age: 80 Year
  Sex: Female

DRUGS (2)
  1. FOSFOMYCIN [Suspect]
     Indication: URINARY TRACT INFECTION
     Dosage: 1 DF
  2. FOSFOMYCIN [Suspect]
     Indication: DRUG THERAPY

REACTIONS (4)
  - OFF LABEL USE [None]
  - OVERDOSE [None]
  - TENDON RUPTURE [None]
  - INCORRECT ROUTE OF DRUG ADMINISTRATION [None]
